FAERS Safety Report 13416431 (Version 2)
Quarter: 2017Q2

REPORT INFORMATION
  Report Type: Spontaneous
  Country: JP (occurrence: JP)
  Receive Date: 20170407
  Receipt Date: 20170426
  Transmission Date: 20170830
  Serious: Yes (Death, Other)
  Sender: FDA-Public Use
  Company Number: JP-PFIZER INC-2017154413

PATIENT
  Age: 61 Year
  Sex: Male

DRUGS (3)
  1. LYRICA [Suspect]
     Active Substance: PREGABALIN
  2. CELECOX [Suspect]
     Active Substance: CELECOXIB
  3. ONETRAM [Suspect]
     Active Substance: TRAMADOL HYDROCHLORIDE

REACTIONS (5)
  - Tumour embolism [Unknown]
  - Renal cancer [Unknown]
  - Pain [Unknown]
  - Neoplasm progression [Fatal]
  - Blood alkaline phosphatase increased [Unknown]
